FAERS Safety Report 23693728 (Version 1)
Quarter: 2024Q1

REPORT INFORMATION
  Report Type: Spontaneous
  Country: US (occurrence: None)
  Receive Date: 20240331
  Receipt Date: 20240331
  Transmission Date: 20240409
  Serious: Yes (unspecified)
  Sender: FDA-Public Use
  Company Number: None

PATIENT
  Age: 42 Year
  Sex: Female
  Weight: 77.85 kg

DRUGS (4)
  1. WEGOVY [Suspect]
     Active Substance: SEMAGLUTIDE
     Indication: Blood cholesterol increased
     Dosage: 1 INJECTION ONCE  WEEK SUBCUTANEOUS?
     Route: 058
     Dates: start: 20230623, end: 20240331
  2. WEGOVY [Suspect]
     Active Substance: SEMAGLUTIDE
     Indication: Blood triglycerides increased
  3. WEGOVY [Suspect]
     Active Substance: SEMAGLUTIDE
     Indication: Obesity
  4. WEGOVY [Concomitant]
     Active Substance: SEMAGLUTIDE

REACTIONS (3)
  - Alopecia [None]
  - Menopausal symptoms [None]
  - Circumstance or information capable of leading to medication error [None]

NARRATIVE: CASE EVENT DATE: 20240301
